FAERS Safety Report 17966073 (Version 9)
Quarter: 2025Q2

REPORT INFORMATION
  Report Type: Other
  Country: CA (occurrence: CA)
  Receive Date: 20200701
  Receipt Date: 20250406
  Transmission Date: 20250716
  Serious: Yes (Other)
  Sender: GLENMARK
  Company Number: CA-GLENMARK PHARMACEUTICALS-2020GMK048311

PATIENT
  Age: 56 Year
  Sex: Female

DRUGS (157)
  1. GABAPENTIN [Interacting]
     Active Substance: GABAPENTIN
     Indication: Migraine
     Route: 065
  2. GABAPENTIN [Interacting]
     Active Substance: GABAPENTIN
     Route: 065
  3. GABAPENTIN [Interacting]
     Active Substance: GABAPENTIN
     Indication: Migraine
     Route: 065
  4. GABAPENTIN [Interacting]
     Active Substance: GABAPENTIN
     Route: 065
  5. TOPIRAMATE [Interacting]
     Active Substance: TOPIRAMATE
     Indication: Migraine
     Route: 065
  6. TOPIRAMATE [Interacting]
     Active Substance: TOPIRAMATE
     Route: 065
  7. TOPIRAMATE [Interacting]
     Active Substance: TOPIRAMATE
     Route: 065
  8. TOPIRAMATE [Interacting]
     Active Substance: TOPIRAMATE
     Route: 065
  9. TOPIRAMATE [Interacting]
     Active Substance: TOPIRAMATE
     Indication: Migraine
     Route: 048
  10. AMITRIPTYLINE [Interacting]
     Active Substance: AMITRIPTYLINE
     Indication: Migraine
     Route: 065
  11. CANDESARTAN CILEXETIL [Interacting]
     Active Substance: CANDESARTAN CILEXETIL
     Indication: Migraine
     Route: 048
  12. DULOXETINE [Interacting]
     Active Substance: DULOXETINE
     Indication: Migraine
     Route: 065
  13. MIRTAZAPINE [Interacting]
     Active Substance: MIRTAZAPINE
     Indication: Migraine
     Route: 065
  14. MIRTAZAPINE [Interacting]
     Active Substance: MIRTAZAPINE
     Route: 048
  15. MIRTAZAPINE [Interacting]
     Active Substance: MIRTAZAPINE
     Route: 065
  16. MIRTAZAPINE [Interacting]
     Active Substance: MIRTAZAPINE
     Route: 065
  17. MIRTAZAPINE [Interacting]
     Active Substance: MIRTAZAPINE
     Route: 065
  18. MIRTAZAPINE [Interacting]
     Active Substance: MIRTAZAPINE
     Route: 065
  19. ONDANSETRON [Interacting]
     Active Substance: ONDANSETRON
     Indication: Migraine
     Route: 065
  20. ONDANSETRON [Interacting]
     Active Substance: ONDANSETRON
     Route: 065
  21. ONDANSETRON [Interacting]
     Active Substance: ONDANSETRON
     Route: 065
  22. ONDANSETRON [Interacting]
     Active Substance: ONDANSETRON
     Route: 065
  23. OXYCODONE [Interacting]
     Active Substance: OXYCODONE
     Indication: Migraine
     Route: 065
  24. PERINDOPRIL ERBUMINE [Interacting]
     Active Substance: PERINDOPRIL ERBUMINE
     Indication: Toxicity to various agents
     Route: 065
  25. PERINDOPRIL ERBUMINE [Interacting]
     Active Substance: PERINDOPRIL ERBUMINE
     Indication: Nephropathy toxic
     Route: 065
  26. PERINDOPRIL ERBUMINE [Interacting]
     Active Substance: PERINDOPRIL ERBUMINE
     Indication: Hypertension
     Route: 065
  27. PERINDOPRIL ERBUMINE [Interacting]
     Active Substance: PERINDOPRIL ERBUMINE
     Indication: Migraine
     Route: 065
  28. PERINDOPRIL ERBUMINE [Interacting]
     Active Substance: PERINDOPRIL ERBUMINE
     Route: 065
  29. PERINDOPRIL ERBUMINE [Interacting]
     Active Substance: PERINDOPRIL ERBUMINE
     Route: 065
  30. PERINDOPRIL ERBUMINE [Interacting]
     Active Substance: PERINDOPRIL ERBUMINE
     Route: 065
  31. PERINDOPRIL ERBUMINE [Interacting]
     Active Substance: PERINDOPRIL ERBUMINE
     Route: 065
  32. PERINDOPRIL ERBUMINE [Interacting]
     Active Substance: PERINDOPRIL ERBUMINE
     Route: 065
  33. PERINDOPRIL ERBUMINE [Interacting]
     Active Substance: PERINDOPRIL ERBUMINE
     Route: 065
  34. PERINDOPRIL ERBUMINE [Interacting]
     Active Substance: PERINDOPRIL ERBUMINE
     Route: 065
  35. PERINDOPRIL ERBUMINE [Interacting]
     Active Substance: PERINDOPRIL ERBUMINE
     Route: 065
  36. PERINDOPRIL ERBUMINE [Interacting]
     Active Substance: PERINDOPRIL ERBUMINE
     Route: 065
  37. PERINDOPRIL ERBUMINE [Interacting]
     Active Substance: PERINDOPRIL ERBUMINE
     Route: 065
  38. PERINDOPRIL ERBUMINE [Interacting]
     Active Substance: PERINDOPRIL ERBUMINE
     Route: 065
  39. PERINDOPRIL ERBUMINE [Interacting]
     Active Substance: PERINDOPRIL ERBUMINE
     Route: 065
  40. PERINDOPRIL ERBUMINE [Interacting]
     Active Substance: PERINDOPRIL ERBUMINE
     Route: 065
  41. PERINDOPRIL ERBUMINE [Interacting]
     Active Substance: PERINDOPRIL ERBUMINE
     Route: 065
  42. PERINDOPRIL ERBUMINE [Interacting]
     Active Substance: PERINDOPRIL ERBUMINE
     Route: 065
  43. PERINDOPRIL ERBUMINE [Interacting]
     Active Substance: PERINDOPRIL ERBUMINE
     Route: 065
  44. PERINDOPRIL ERBUMINE [Interacting]
     Active Substance: PERINDOPRIL ERBUMINE
     Route: 065
  45. PERINDOPRIL ERBUMINE [Interacting]
     Active Substance: PERINDOPRIL ERBUMINE
     Route: 065
  46. PERINDOPRIL ERBUMINE [Interacting]
     Active Substance: PERINDOPRIL ERBUMINE
     Route: 065
  47. PERINDOPRIL ERBUMINE [Interacting]
     Active Substance: PERINDOPRIL ERBUMINE
     Route: 065
  48. PERINDOPRIL ERBUMINE [Interacting]
     Active Substance: PERINDOPRIL ERBUMINE
     Route: 065
  49. PERINDOPRIL ERBUMINE [Interacting]
     Active Substance: PERINDOPRIL ERBUMINE
     Route: 065
  50. PERINDOPRIL ERBUMINE [Interacting]
     Active Substance: PERINDOPRIL ERBUMINE
     Route: 065
  51. PERINDOPRIL ERBUMINE [Interacting]
     Active Substance: PERINDOPRIL ERBUMINE
     Route: 065
  52. PERINDOPRIL ERBUMINE [Interacting]
     Active Substance: PERINDOPRIL ERBUMINE
     Route: 065
  53. PERINDOPRIL ERBUMINE [Interacting]
     Active Substance: PERINDOPRIL ERBUMINE
     Route: 047
  54. PERINDOPRIL ERBUMINE [Interacting]
     Active Substance: PERINDOPRIL ERBUMINE
     Route: 047
  55. PERINDOPRIL ERBUMINE [Interacting]
     Active Substance: PERINDOPRIL ERBUMINE
     Route: 065
  56. PROPRANOLOL [Interacting]
     Active Substance: PROPRANOLOL HYDROCHLORIDE
     Indication: Toxicity to various agents
     Route: 065
  57. PROPRANOLOL [Interacting]
     Active Substance: PROPRANOLOL HYDROCHLORIDE
     Indication: Nephropathy toxic
     Route: 048
  58. PROPRANOLOL [Interacting]
     Active Substance: PROPRANOLOL HYDROCHLORIDE
     Indication: Hypertension
     Dosage: 120 MILLIGRAM, OD (1 EVERY 1 DAYS)
     Route: 065
  59. PROPRANOLOL [Interacting]
     Active Substance: PROPRANOLOL HYDROCHLORIDE
     Indication: Migraine
     Dosage: 120 MILLIGRAM, OD (1 EVERY 1 DAYS)
     Route: 065
  60. PROPRANOLOL [Interacting]
     Active Substance: PROPRANOLOL HYDROCHLORIDE
     Dosage: 120 MILLIGRAM, OD (1 EVERY 1 DAYS)
     Route: 065
  61. PROPRANOLOL [Interacting]
     Active Substance: PROPRANOLOL HYDROCHLORIDE
     Dosage: 120 MILLIGRAM, OD (1 EVERY 1 DAYS)
     Route: 065
  62. PROPRANOLOL [Interacting]
     Active Substance: PROPRANOLOL HYDROCHLORIDE
     Route: 065
  63. PROPRANOLOL [Interacting]
     Active Substance: PROPRANOLOL HYDROCHLORIDE
     Route: 065
  64. PROPRANOLOL [Interacting]
     Active Substance: PROPRANOLOL HYDROCHLORIDE
     Dosage: 120 MILLIGRAM, OD (1 EVERY 1 DAYS)
     Route: 048
  65. CANDESARTAN [Interacting]
     Active Substance: CANDESARTAN
     Indication: Migraine
     Route: 065
  66. CANDESARTAN [Interacting]
     Active Substance: CANDESARTAN
     Route: 048
  67. CANDESARTAN [Interacting]
     Active Substance: CANDESARTAN
     Route: 065
  68. CANDESARTAN [Interacting]
     Active Substance: CANDESARTAN
     Route: 065
  69. DULOXETINE HYDROCHLORIDE [Interacting]
     Active Substance: DULOXETINE HYDROCHLORIDE
     Indication: Migraine
     Route: 065
  70. ONDANSETRON HYDROCHLORIDE [Interacting]
     Active Substance: ONDANSETRON HYDROCHLORIDE
     Indication: Migraine
     Route: 065
  71. ONDANSETRON HYDROCHLORIDE [Interacting]
     Active Substance: ONDANSETRON HYDROCHLORIDE
     Route: 065
  72. PROPRANOLOL HYDROCHLORIDE [Suspect]
     Active Substance: PROPRANOLOL HYDROCHLORIDE
     Indication: Toxicity to various agents
     Route: 065
  73. PROPRANOLOL HYDROCHLORIDE [Suspect]
     Active Substance: PROPRANOLOL HYDROCHLORIDE
     Indication: Nephropathy toxic
     Route: 065
  74. PROPRANOLOL HYDROCHLORIDE [Suspect]
     Active Substance: PROPRANOLOL HYDROCHLORIDE
     Indication: Hypertension
     Route: 065
  75. ONDANSETRON HYDROCHLORIDE [Suspect]
     Active Substance: ONDANSETRON HYDROCHLORIDE
     Indication: Migraine
     Route: 065
  76. ONDANSETRON HYDROCHLORIDE [Suspect]
     Active Substance: ONDANSETRON HYDROCHLORIDE
     Route: 065
  77. PERINDOPRIL [Suspect]
     Active Substance: PERINDOPRIL
     Indication: Toxicity to various agents
     Route: 065
  78. PERINDOPRIL [Suspect]
     Active Substance: PERINDOPRIL
     Indication: Nephropathy toxic
     Route: 065
  79. PERINDOPRIL [Suspect]
     Active Substance: PERINDOPRIL
     Indication: Hypertension
     Route: 065
  80. PERINDOPRIL [Suspect]
     Active Substance: PERINDOPRIL
     Indication: Migraine
     Route: 065
  81. PERINDOPRIL [Suspect]
     Active Substance: PERINDOPRIL
     Route: 065
  82. PERINDOPRIL [Suspect]
     Active Substance: PERINDOPRIL
     Route: 065
  83. PERINDOPRIL [Suspect]
     Active Substance: PERINDOPRIL
     Route: 065
  84. PERINDOPRIL [Suspect]
     Active Substance: PERINDOPRIL
     Route: 065
  85. PERINDOPRIL [Suspect]
     Active Substance: PERINDOPRIL
     Route: 065
  86. PERINDOPRIL [Suspect]
     Active Substance: PERINDOPRIL
     Route: 065
  87. PERINDOPRIL [Suspect]
     Active Substance: PERINDOPRIL
     Route: 065
  88. PERINDOPRIL [Suspect]
     Active Substance: PERINDOPRIL
     Route: 065
  89. PERINDOPRIL [Suspect]
     Active Substance: PERINDOPRIL
     Route: 065
  90. PERINDOPRIL [Interacting]
     Active Substance: PERINDOPRIL
     Indication: Toxicity to various agents
     Route: 065
  91. PERINDOPRIL [Interacting]
     Active Substance: PERINDOPRIL
     Indication: Nephropathy toxic
     Route: 065
  92. PERINDOPRIL [Interacting]
     Active Substance: PERINDOPRIL
     Indication: Hypertension
     Route: 065
  93. PERINDOPRIL [Interacting]
     Active Substance: PERINDOPRIL
     Indication: Migraine
     Route: 065
  94. PERINDOPRIL [Interacting]
     Active Substance: PERINDOPRIL
     Indication: Nephropathy
     Route: 065
  95. PERINDOPRIL [Interacting]
     Active Substance: PERINDOPRIL
     Route: 065
  96. PERINDOPRIL [Interacting]
     Active Substance: PERINDOPRIL
     Route: 065
  97. PERINDOPRIL [Interacting]
     Active Substance: PERINDOPRIL
     Route: 065
  98. PERINDOPRIL [Interacting]
     Active Substance: PERINDOPRIL
     Route: 065
  99. PERINDOPRIL [Interacting]
     Active Substance: PERINDOPRIL
     Route: 065
  100. PERINDOPRIL [Interacting]
     Active Substance: PERINDOPRIL
     Route: 065
  101. PERINDOPRIL [Interacting]
     Active Substance: PERINDOPRIL
     Route: 065
  102. DULOXETINE HYDROCHLORIDE [Interacting]
     Active Substance: DULOXETINE HYDROCHLORIDE
     Indication: Migraine
     Route: 065
  103. AIMOVIG [Interacting]
     Active Substance: ERENUMAB-AOOE
     Indication: Migraine
     Route: 065
  104. AIMOVIG [Interacting]
     Active Substance: ERENUMAB-AOOE
     Route: 058
  105. INDOMETHACIN [Interacting]
     Active Substance: INDOMETHACIN
     Indication: Migraine
     Route: 065
  106. INDOMETHACIN [Interacting]
     Active Substance: INDOMETHACIN
     Route: 065
  107. CYMBALTA [Interacting]
     Active Substance: DULOXETINE HYDROCHLORIDE
     Indication: Migraine
     Route: 065
  108. CYMBALTA [Interacting]
     Active Substance: DULOXETINE HYDROCHLORIDE
     Route: 065
  109. DULOXETINE HYDROCHLORIDE [Suspect]
     Active Substance: DULOXETINE HYDROCHLORIDE
     Indication: Migraine
     Route: 065
  110. PROPRANOLOL HYDROCHLORIDE [Suspect]
     Active Substance: PROPRANOLOL HYDROCHLORIDE
     Indication: Toxicity to various agents
     Route: 065
  111. PROPRANOLOL HYDROCHLORIDE [Suspect]
     Active Substance: PROPRANOLOL HYDROCHLORIDE
     Indication: Nephropathy toxic
     Route: 065
  112. PROPRANOLOL HYDROCHLORIDE [Suspect]
     Active Substance: PROPRANOLOL HYDROCHLORIDE
     Indication: Migraine
     Route: 065
  113. PROPRANOLOL HYDROCHLORIDE [Suspect]
     Active Substance: PROPRANOLOL HYDROCHLORIDE
     Indication: Hypertension
     Route: 065
  114. PERINDOPRIL ERBUMINE [Interacting]
     Active Substance: PERINDOPRIL ERBUMINE
     Indication: Toxicity to various agents
     Route: 065
  115. PERINDOPRIL ERBUMINE [Interacting]
     Active Substance: PERINDOPRIL ERBUMINE
     Indication: Nephropathy toxic
     Route: 065
  116. PERINDOPRIL ERBUMINE [Interacting]
     Active Substance: PERINDOPRIL ERBUMINE
     Indication: Hypertension
     Route: 065
  117. PERINDOPRIL ERBUMINE [Interacting]
     Active Substance: PERINDOPRIL ERBUMINE
     Indication: Migraine
  118. ERENUMAB-AOOE [Interacting]
     Active Substance: ERENUMAB-AOOE
     Indication: Product used for unknown indication
     Route: 065
  119. ERENUMAB-AOOE [Interacting]
     Active Substance: ERENUMAB-AOOE
     Route: 065
  120. AMITRIPTYLINE [Interacting]
     Active Substance: AMITRIPTYLINE
     Indication: Migraine
     Route: 065
  121. CANDESARTAN [Interacting]
     Active Substance: CANDESARTAN
     Indication: Migraine
     Route: 048
  122. ONDANSETRON HYDROCHLORIDE [Interacting]
     Active Substance: ONDANSETRON HYDROCHLORIDE
     Indication: Migraine
     Route: 065
  123. ONDANSETRON HYDROCHLORIDE [Interacting]
     Active Substance: ONDANSETRON HYDROCHLORIDE
     Route: 065
  124. PROPRANOLOL [Interacting]
     Active Substance: PROPRANOLOL HYDROCHLORIDE
     Indication: Toxicity to various agents
     Route: 065
  125. PROPRANOLOL [Interacting]
     Active Substance: PROPRANOLOL HYDROCHLORIDE
     Indication: Nephropathy toxic
     Route: 065
  126. PROPRANOLOL [Interacting]
     Active Substance: PROPRANOLOL HYDROCHLORIDE
     Indication: Hypertension
     Route: 065
  127. PROPRANOLOL [Interacting]
     Active Substance: PROPRANOLOL HYDROCHLORIDE
     Indication: Migraine
     Route: 065
  128. PROPRANOLOL [Interacting]
     Active Substance: PROPRANOLOL HYDROCHLORIDE
     Route: 065
  129. PROPRANOLOL [Interacting]
     Active Substance: PROPRANOLOL HYDROCHLORIDE
     Route: 065
  130. PROPRANOLOL [Interacting]
     Active Substance: PROPRANOLOL HYDROCHLORIDE
     Route: 065
  131. PROPRANOLOL [Interacting]
     Active Substance: PROPRANOLOL HYDROCHLORIDE
     Indication: Toxicity to various agents
     Route: 065
  132. PROPRANOLOL [Interacting]
     Active Substance: PROPRANOLOL HYDROCHLORIDE
     Indication: Nephropathy toxic
     Route: 065
  133. PROPRANOLOL [Interacting]
     Active Substance: PROPRANOLOL HYDROCHLORIDE
     Indication: Hypertension
     Route: 065
  134. PROPRANOLOL [Interacting]
     Active Substance: PROPRANOLOL HYDROCHLORIDE
     Indication: Migraine
     Route: 065
  135. PROPRANOLOL [Interacting]
     Active Substance: PROPRANOLOL HYDROCHLORIDE
     Route: 065
  136. PROPRANOLOL [Interacting]
     Active Substance: PROPRANOLOL HYDROCHLORIDE
     Route: 065
  137. AMITRIPTYLINE [Concomitant]
     Active Substance: AMITRIPTYLINE
     Indication: Migraine
     Route: 065
  138. PROPRANOLOL [Interacting]
     Active Substance: PROPRANOLOL HYDROCHLORIDE
     Indication: Toxicity to various agents
     Route: 065
  139. PROPRANOLOL [Interacting]
     Active Substance: PROPRANOLOL HYDROCHLORIDE
     Indication: Nephropathy toxic
     Route: 065
  140. PROPRANOLOL [Interacting]
     Active Substance: PROPRANOLOL HYDROCHLORIDE
     Indication: Hypertension
     Route: 065
  141. PROPRANOLOL [Interacting]
     Active Substance: PROPRANOLOL HYDROCHLORIDE
     Indication: Migraine
     Route: 065
  142. PROPRANOLOL [Interacting]
     Active Substance: PROPRANOLOL HYDROCHLORIDE
     Route: 065
  143. PROPRANOLOL [Interacting]
     Active Substance: PROPRANOLOL HYDROCHLORIDE
     Route: 065
  144. PROPRANOLOL HYDROCHLORIDE [Suspect]
     Active Substance: PROPRANOLOL HYDROCHLORIDE
     Indication: Toxicity to various agents
     Route: 065
  145. PROPRANOLOL HYDROCHLORIDE [Suspect]
     Active Substance: PROPRANOLOL HYDROCHLORIDE
     Indication: Nephropathy toxic
     Route: 065
  146. PROPRANOLOL HYDROCHLORIDE [Suspect]
     Active Substance: PROPRANOLOL HYDROCHLORIDE
     Indication: Hypertension
  147. DULOXETINE HYDROCHLORIDE [Interacting]
     Active Substance: DULOXETINE HYDROCHLORIDE
     Indication: Product used for unknown indication
     Route: 065
  148. DOMPERIDONE MALEATE [Concomitant]
     Active Substance: DOMPERIDONE MALEATE
     Indication: Migraine
     Route: 048
  149. DOMPERIDONE MALEATE [Concomitant]
     Active Substance: DOMPERIDONE MALEATE
     Route: 065
  150. BOTULINUM TOXIN TYPE A [Concomitant]
     Active Substance: BOTULINUM TOXIN TYPE A
     Indication: Migraine
     Route: 030
  151. BOTULINUM TOXIN TYPE A [Concomitant]
     Active Substance: BOTULINUM TOXIN TYPE A
     Route: 065
  152. DIVALPROEX SODIUM [Concomitant]
     Active Substance: DIVALPROEX SODIUM
     Indication: Migraine
     Route: 065
  153. DIVALPROEX SODIUM [Concomitant]
     Active Substance: DIVALPROEX SODIUM
     Route: 065
  154. DOMPERIDONE [Concomitant]
     Active Substance: DOMPERIDONE
     Indication: Migraine
     Route: 065
  155. DOMPERIDONE [Concomitant]
     Active Substance: DOMPERIDONE
     Route: 048
  156. DOMPERIDONE [Concomitant]
     Active Substance: DOMPERIDONE
     Route: 065
  157. DOMPERIDONE [Concomitant]
     Active Substance: DOMPERIDONE
     Route: 065

REACTIONS (14)
  - Toxicity to various agents [Unknown]
  - Drug interaction [Unknown]
  - Drug intolerance [Unknown]
  - Electrocardiogram QT prolonged [Unknown]
  - Serotonin syndrome [Unknown]
  - Mental disorder [Unknown]
  - Hypertension [Unknown]
  - Fall [Unknown]
  - Nephropathy toxic [Unknown]
  - Depressed level of consciousness [Unknown]
  - Contraindicated product administered [Unknown]
  - Off label use [Unknown]
  - Drug ineffective for unapproved indication [Unknown]
  - Drug ineffective [Unknown]
